FAERS Safety Report 25150751 (Version 1)
Quarter: 2025Q2

REPORT INFORMATION
  Report Type: Spontaneous
  Country: GB (occurrence: GB)
  Receive Date: 20250402
  Receipt Date: 20250402
  Transmission Date: 20250716
  Serious: Yes (Other)
  Sender: ALKEM
  Company Number: None

PATIENT
  Age: 41 Year
  Sex: Male
  Weight: 60 kg

DRUGS (2)
  1. FINASTERIDE [Suspect]
     Active Substance: FINASTERIDE
     Indication: Alopecia
     Route: 065
  2. Monodixil [Concomitant]
     Indication: Alopecia
     Route: 065

REACTIONS (5)
  - Confusional state [Unknown]
  - Memory impairment [Unknown]
  - Brain fog [Recovered/Resolved]
  - Fatigue [Unknown]
  - Mental fatigue [Unknown]

NARRATIVE: CASE EVENT DATE: 20240316
